FAERS Safety Report 10254352 (Version 2)
Quarter: 2015Q2

REPORT INFORMATION
  Report Type: Spontaneous
  Country: FR (occurrence: FR)
  Receive Date: 20140624
  Receipt Date: 20150626
  Transmission Date: 20150821
  Serious: Yes (Hospitalization)
  Sender: FDA-Public Use
  Company Number: FR-UCBSA-2014002707

PATIENT
  Age: 67 Year
  Sex: Female

DRUGS (6)
  1. CORTANCYL [Concomitant]
     Active Substance: PREDNISONE
     Dosage: DOSE UNKNOWN
  2. KEPPRA [Suspect]
     Active Substance: LEVETIRACETAM
     Indication: BRAIN OEDEMA
     Dosage: 500 MG, 2X/DAY (BID)
     Route: 048
     Dates: start: 20140502, end: 20140516
  3. ATARAX [Concomitant]
     Active Substance: HYDROXYZINE\HYDROXYZINE HYDROCHLORIDE
     Dosage: DOSE UNKNOWN
  4. INEXIUM [Concomitant]
     Active Substance: ESOMEPRAZOLE
     Dosage: DOSE UNKNOWN
  5. NERISONE [Concomitant]
     Active Substance: DIFLUCORTOLONE VALERATE
     Dosage: DOSE UNKNOWN
  6. ZELBORAF [Suspect]
     Active Substance: VEMURAFENIB
     Indication: MALIGNANT MELANOMA
     Dosage: 240 MG, 8X/DAY
     Route: 048
     Dates: start: 20140502, end: 20140513

REACTIONS (1)
  - Acute generalised exanthematous pustulosis [Recovered/Resolved]

NARRATIVE: CASE EVENT DATE: 20140507
